FAERS Safety Report 8268466-7 (Version None)
Quarter: 2012Q2

REPORT INFORMATION
  Report Type: 
  Country: None (occurrence: None)
  Receive Date: 20120409
  Receipt Date: 20120405
  Transmission Date: 20120825
  Serious: Yes (Hospitalization)
  Sender: FDA-Public Use
  Company Number: PHEH2012US006937

PATIENT
  Sex: Female
  Weight: 115.19 kg

DRUGS (4)
  1. GILENYA [Suspect]
     Dosage: 10 DF, ONCE/SINGLE
     Route: 048
  2. GILENYA [Suspect]
     Dosage: 0.5 MG, QD
  3. GILENYA [Suspect]
     Indication: MULTIPLE SCLEROSIS
     Dosage: 0.5 MG, QD
     Route: 048
     Dates: start: 20110501
  4. TIZANIDINE HCL [Concomitant]
     Indication: MUSCLE SPASTICITY
     Dosage: 4 MG, TID
     Route: 048

REACTIONS (3)
  - SUICIDE ATTEMPT [None]
  - INTENTIONAL OVERDOSE [None]
  - BRADYCARDIA [None]
